FAERS Safety Report 6432993-5 (Version None)
Quarter: 2009Q4

REPORT INFORMATION
  Report Type: 
  Country: None (occurrence: None)
  Receive Date: 20091109
  Receipt Date: 20090928
  Transmission Date: 20100525
  Serious: No
  Sender: FDA-Public Use
  Company Number: AU-ASTRAZENECA-2009SE16455

PATIENT
  Age: 73 Year
  Sex: Female

DRUGS (2)
  1. SEROQUEL [Suspect]
     Route: 048
     Dates: start: 20090127, end: 20090224
  2. MIRTAZAPINE [Suspect]
     Route: 048
     Dates: start: 20090215, end: 20090224

REACTIONS (1)
  - NEUTROPENIA [None]
